FAERS Safety Report 5342035-0 (Version None)
Quarter: 2007Q2

REPORT INFORMATION
  Report Type: 
  Country: None (occurrence: None)
  Receive Date: 20070530
  Receipt Date: 20070530
  Transmission Date: 20071010
  Serious: Yes (Hospitalization)
  Sender: FDA-Public Use
  Company Number: None

PATIENT
  Age: 79 Year
  Sex: Female
  Weight: 81.6 kg

DRUGS (2)
  1. ZYVOX [Suspect]
     Indication: BACTERAEMIA
     Dosage: 600 MG BID PO
     Route: 048
     Dates: start: 20070405, end: 20070517
  2. ZYVOX [Suspect]
     Indication: PATHOGEN RESISTANCE
     Dosage: 600 MG BID PO
     Route: 048
     Dates: start: 20070405, end: 20070517

REACTIONS (5)
  - ANAEMIA [None]
  - DIARRHOEA [None]
  - GASTROINTESTINAL DISORDER [None]
  - HAEMORRHAGE [None]
  - PANCYTOPENIA [None]
